FAERS Safety Report 22959036 (Version 5)
Quarter: 2023Q4

REPORT INFORMATION
  Report Type: Spontaneous
  Country: JP (occurrence: JP)
  Receive Date: 20230919
  Receipt Date: 20231227
  Transmission Date: 20240110
  Serious: Yes (Death, Hospitalization, Other)
  Sender: FDA-Public Use
  Company Number: JP-JNJFOC-20230934605

PATIENT
  Age: 70 Year

DRUGS (1)
  1. TRABECTEDIN [Suspect]
     Active Substance: TRABECTEDIN
     Indication: Product used for unknown indication
     Route: 041

REACTIONS (6)
  - Condition aggravated [Fatal]
  - Colitis ischaemic [Not Recovered/Not Resolved]
  - Gastrointestinal perforation [Unknown]
  - Renal infarct [Unknown]
  - Splenic infarction [Unknown]
  - Cerebral infarction [Unknown]

NARRATIVE: CASE EVENT DATE: 20230801
